FAERS Safety Report 10812930 (Version 2)
Quarter: 2015Q1

REPORT INFORMATION
  Report Type: Spontaneous
  Country: JP (occurrence: JP)
  Receive Date: 20150218
  Receipt Date: 20150325
  Transmission Date: 20150721
  Serious: Yes (Other)
  Sender: FDA-Public Use
  Company Number: JP-ASTRAZENECA-2015SE15445

PATIENT
  Age: 31 Year
  Sex: Male

DRUGS (2)
  1. LODOPIN [Suspect]
     Active Substance: ZOTEPINE
     Indication: BIPOLAR DISORDER
     Route: 048
  2. SEROQUEL [Suspect]
     Active Substance: QUETIAPINE FUMARATE
     Indication: BIPOLAR DISORDER
     Route: 048

REACTIONS (3)
  - Hepatic function abnormal [Unknown]
  - Off label use [Unknown]
  - Increased appetite [Unknown]
